FAERS Safety Report 9750227 (Version 1)
Quarter: 2013Q4

REPORT INFORMATION
  Report Type: Spontaneous
  Country: FR (occurrence: FR)
  Receive Date: 20131212
  Receipt Date: 20131212
  Transmission Date: 20140711
  Serious: Yes (Death)
  Sender: FDA-Public Use
  Company Number: FR-GLAXOSMITHKLINE-B0951875A

PATIENT
  Age: 74 Year
  Sex: Male

DRUGS (10)
  1. DEROXAT [Suspect]
     Indication: DEPRESSION
     Dosage: 1UNIT PER DAY
     Route: 048
  2. XARELTO [Suspect]
     Indication: ATRIAL FIBRILLATION
     Dosage: 15MG PER DAY
     Route: 048
     Dates: start: 20130701
  3. VASTEN [Concomitant]
     Indication: DYSLIPIDAEMIA
     Dosage: 20MG PER DAY
     Route: 048
  4. NOVONORM [Concomitant]
     Indication: TYPE 1 DIABETES MELLITUS
     Dosage: 5UNIT PER DAY
     Route: 048
  5. AMLOR [Concomitant]
     Indication: HYPERTENSION
     Dosage: 5MG IN THE MORNING
     Route: 048
  6. CORDARONE [Concomitant]
     Indication: ATRIAL FIBRILLATION
     Dosage: 200MG PER DAY
     Route: 048
  7. STILNOX [Concomitant]
     Dosage: 5MG PER DAY
     Route: 048
  8. LAMALINE [Concomitant]
     Dosage: 2UNIT PER DAY
     Route: 048
  9. INEXIUM [Concomitant]
     Dosage: 40MG PER DAY
     Route: 048
  10. LANTUS [Concomitant]
     Indication: TYPE 1 DIABETES MELLITUS
     Dosage: 7IU PER DAY
     Route: 058

REACTIONS (9)
  - Cerebral haematoma [Fatal]
  - Malaise [Unknown]
  - Headache [Unknown]
  - Vomiting [Unknown]
  - Hemiparesis [Unknown]
  - Disturbance in attention [Unknown]
  - Coma [Unknown]
  - Haematoma [Fatal]
  - Haemorrhagic stroke [Fatal]
